FAERS Safety Report 7208270-1 (Version None)
Quarter: 2011Q1

REPORT INFORMATION
  Report Type: 
  Country: None (occurrence: None)
  Receive Date: 20110104
  Receipt Date: 20101214
  Transmission Date: 20110831
  Serious: Yes (Hospitalization)
  Sender: FDA-Public Use
  Company Number: SE-SANOFI-AVENTIS-2010SA078149

PATIENT
  Age: 62 Year
  Sex: Male

DRUGS (3)
  1. TRIOBE [Concomitant]
  2. CREON [Concomitant]
  3. DDAVP [Suspect]
     Route: 065
     Dates: end: 20101008

REACTIONS (1)
  - INAPPROPRIATE ANTIDIURETIC HORMONE SECRETION [None]
